FAERS Safety Report 18446523 (Version 1)
Quarter: 2020Q4

REPORT INFORMATION
  Report Type: Other
  Country: CA (occurrence: CA)
  Receive Date: 20201030
  Receipt Date: 20201030
  Transmission Date: 20210114
  Serious: Yes (Other)
  Sender: FDA-Public Use
  Company Number: CA-APOTEX-2020AP020502

PATIENT
  Age: 71 Year

DRUGS (9)
  1. CISPLATIN. [Suspect]
     Active Substance: CISPLATIN
     Indication: B-CELL LYMPHOMA
     Dosage: UNK
     Route: 042
  2. RITUXIMAB. [Suspect]
     Active Substance: RITUXIMAB
     Indication: B-CELL LYMPHOMA
     Dosage: UNK
     Route: 042
  3. DEXAMETHASONE. [Suspect]
     Active Substance: DEXAMETHASONE
     Indication: B-CELL LYMPHOMA
     Dosage: UNK
     Route: 042
  4. ONCOVIN [Suspect]
     Active Substance: VINCRISTINE SULFATE
     Indication: B-CELL LYMPHOMA
     Dosage: UNK
     Route: 042
  5. RITUXIMAB. [Suspect]
     Active Substance: RITUXIMAB
     Dosage: UNK
     Route: 042
  6. DOXORUBICIN HYDROCHLORIDE. [Suspect]
     Active Substance: DOXORUBICIN HYDROCHLORIDE
     Indication: B-CELL LYMPHOMA
     Dosage: UNK
     Route: 042
  7. CYCLOPHOSPHAMIDE. [Suspect]
     Active Substance: CYCLOPHOSPHAMIDE
     Indication: B-CELL LYMPHOMA
     Dosage: UNK
     Route: 042
  8. PREDNISOLONE. [Suspect]
     Active Substance: PREDNISOLONE
     Indication: B-CELL LYMPHOMA
     Dosage: UNK
     Route: 042
  9. GEMCITABINE. [Suspect]
     Active Substance: GEMCITABINE
     Indication: B-CELL LYMPHOMA
     Dosage: UNK
     Route: 042

REACTIONS (2)
  - Drug ineffective [Unknown]
  - B-cell lymphoma recurrent [Unknown]
